FAERS Safety Report 4908698-6 (Version None)
Quarter: 2006Q1

REPORT INFORMATION
  Report Type: 
  Country: None (occurrence: None)
  Receive Date: 20060210
  Receipt Date: 20051021
  Transmission Date: 20060701
  Serious: No
  Sender: FDA-Public Use
  Company Number: US-GLAXOSMITHKLINE-A0579199A

PATIENT
  Age: 66 Year
  Sex: Female

DRUGS (6)
  1. PAXIL CR [Suspect]
     Indication: PANIC DISORDER
     Dosage: 37.5MG PER DAY
     Route: 048
     Dates: end: 20050401
  2. DIURETIC [Concomitant]
  3. QUININE [Concomitant]
  4. ASPIRIN [Concomitant]
  5. PROPOXYPHENE HYDROCHLORIDE CAP [Concomitant]
  6. PREVACID [Concomitant]

REACTIONS (3)
  - EMOTIONAL DISTRESS [None]
  - INSOMNIA [None]
  - IRRITABILITY [None]
